FAERS Safety Report 10184083 (Version 1)
Quarter: 2014Q2

REPORT INFORMATION
  Report Type: Spontaneous
  Country: BR (occurrence: BR)
  Receive Date: 20140520
  Receipt Date: 20140520
  Transmission Date: 20141212
  Serious: Yes (Other)
  Sender: FDA-Public Use
  Company Number: BR-ELI_LILLY_AND_COMPANY-BR201405002773

PATIENT
  Sex: Male
  Weight: 90 kg

DRUGS (5)
  1. HUMULIN N [Suspect]
     Indication: TYPE 2 DIABETES MELLITUS
     Dosage: 45 IU, BID
     Route: 058
     Dates: start: 1987
  2. HUMULIN N [Suspect]
     Dosage: 45 IU, BID
     Route: 058
     Dates: start: 201404, end: 20140504
  3. METFORMIN [Concomitant]
     Indication: TYPE 2 DIABETES MELLITUS
     Dosage: 850 MG, TID
     Route: 065
  4. FENOTEROL [Concomitant]
     Indication: EMPHYSEMA
     Dosage: UNK, UNKNOWN
     Route: 065
  5. DORFLEX [Concomitant]
     Indication: PAIN
     Dosage: UNK, UNKNOWN
     Route: 065

REACTIONS (6)
  - Pneumonia [Unknown]
  - Emphysema [Unknown]
  - Blood glucose increased [Recovered/Resolved]
  - Pain in extremity [Not Recovered/Not Resolved]
  - Malaise [Recovered/Resolved]
  - Drug ineffective [Recovered/Resolved]
